FAERS Safety Report 23788709 (Version 1)
Quarter: 2024Q2

REPORT INFORMATION
  Report Type: Report from Study
  Country: JP (occurrence: JP)
  Receive Date: 20240426
  Receipt Date: 20240426
  Transmission Date: 20240716
  Serious: Yes (Hospitalization)
  Sender: FDA-Public Use
  Company Number: JP-Eisai-202400900_LEQ_P_1

PATIENT
  Age: 75 Year
  Sex: Female

DRUGS (2)
  1. LEQEMBI [Suspect]
     Active Substance: LECANEMAB-IRMB
     Indication: Dementia Alzheimer^s type
     Dosage: DOSE AND FREQUENCY UNKNOWN
     Route: 042
     Dates: start: 20240216
  2. LEQEMBI [Suspect]
     Active Substance: LECANEMAB-IRMB
     Dosage: DOSE AND FREQUENCY UNKNOWN
     Route: 042
     Dates: start: 2024

REACTIONS (2)
  - Amyloid related imaging abnormality-oedema/effusion [Recovering/Resolving]
  - Altered state of consciousness [Unknown]

NARRATIVE: CASE EVENT DATE: 20240101
